FAERS Safety Report 14337576 (Version 4)
Quarter: 2019Q3

REPORT INFORMATION
  Report Type: Spontaneous
  Country: JP (occurrence: JP)
  Receive Date: 20171229
  Receipt Date: 20190919
  Transmission Date: 20191004
  Serious: Yes (Hospitalization)
  Sender: FDA-Public Use
  Company Number: JP-JNJFOC-20171234912

PATIENT
  Age: 49 Year
  Sex: Female
  Weight: 77 kg

DRUGS (5)
  1. METFORMIN [Concomitant]
     Active Substance: METFORMIN HYDROCHLORIDE
     Dosage: ORAL DRUG UNSPECIFIED FORM
     Route: 048
     Dates: start: 20171025
  2. METFORMIN [Concomitant]
     Active Substance: METFORMIN HYDROCHLORIDE
     Indication: TYPE 2 DIABETES MELLITUS
     Route: 048
     Dates: start: 2016, end: 20171024
  3. BELSOMRA [Concomitant]
     Active Substance: SUVOREXANT
     Dosage: ORAL DRUG UNSPECIFIED FORM
     Route: 048
     Dates: start: 20170227, end: 20170406
  4. CANAGLIFLOZIN [Suspect]
     Active Substance: CANAGLIFLOZIN
     Indication: TYPE 2 DIABETES MELLITUS
     Route: 048
     Dates: start: 20160610, end: 20190329
  5. MYSLEE [Concomitant]
     Active Substance: ZOLPIDEM TARTRATE
     Dosage: 5 MILLIGRAM, PRN
     Route: 048
     Dates: start: 20170407, end: 20171227

REACTIONS (4)
  - Uterine leiomyoma [Recovered/Resolved]
  - Cystitis [Recovered/Resolved]
  - Menopausal symptoms [Recovering/Resolving]
  - Vulvitis [Recovered/Resolved]

NARRATIVE: CASE EVENT DATE: 20160909
